FAERS Safety Report 8365774-6 (Version None)
Quarter: 2012Q2

REPORT INFORMATION
  Report Type: 
  Country: None (occurrence: None)
  Receive Date: 20120517
  Receipt Date: 20120507
  Transmission Date: 20120825
  Serious: Yes (Death, Hospitalization)
  Sender: FDA-Public Use
  Company Number: JP-AMGEN-JPNSP2012012505

PATIENT
  Age: 62 Year
  Sex: Male
  Weight: 59.8 kg

DRUGS (11)
  1. COTRIM [Concomitant]
     Indication: PROPHYLAXIS
     Dosage: 1 DF, 1X/DAY
     Route: 048
     Dates: start: 20100316
  2. PREDNISOLONE [Suspect]
     Indication: RHEUMATOID ARTHRITIS
     Dosage: UNK
     Route: 048
     Dates: start: 20080101
  3. TICLOPIDINE HCL [Concomitant]
     Indication: PRODUCT USED FOR UNKNOWN INDICATION
     Dosage: 100 MG, 2X/DAY
     Route: 048
     Dates: start: 20100316
  4. MICARDIS [Concomitant]
     Indication: HYPERTENSION
     Dosage: 20 MG, 2X/DAY
     Route: 048
     Dates: start: 20100329
  5. MICARDIS [Concomitant]
     Dosage: 40 MG, 1X/DAY
  6. RHEUMATREX [Suspect]
     Indication: RHEUMATOID ARTHRITIS
     Dosage: 2 MG, QWK
     Dates: start: 20080101, end: 20080501
  7. RHEUMATREX [Suspect]
     Dosage: 2 MG, 1X/DAY
     Dates: start: 20100802, end: 20101227
  8. FAMOTIDINE [Concomitant]
     Indication: PROPHYLAXIS
     Dosage: 20 MG, 1X/DAY
     Route: 048
     Dates: start: 20100220
  9. PREDNISOLONE [Suspect]
     Dosage: 30 UNK, UNK
     Dates: start: 20100301
  10. TACROLIMUS [Concomitant]
     Dosage: UNK
  11. ENBREL [Suspect]
     Indication: RHEUMATOID ARTHRITIS
     Dosage: 25 MG, WEEKLY
     Route: 058
     Dates: start: 20110801, end: 20110815

REACTIONS (1)
  - INTERSTITIAL LUNG DISEASE [None]
